FAERS Safety Report 13408783 (Version 3)
Quarter: 2017Q2

REPORT INFORMATION
  Report Type: Report from Study
  Country: US (occurrence: US)
  Receive Date: 20170406
  Receipt Date: 20170628
  Transmission Date: 20170830
  Serious: Yes (Other)
  Sender: FDA-Public Use
  Company Number: US-ALEXION PHARMACEUTICALS INC.-A201703310

PATIENT
  Sex: Male

DRUGS (2)
  1. ACTEMRA [Concomitant]
     Active Substance: TOCILIZUMAB
     Indication: PRODUCT USED FOR UNKNOWN INDICATION
     Route: 065
  2. SOLIRIS [Suspect]
     Active Substance: ECULIZUMAB
     Indication: HAEMOLYTIC URAEMIC SYNDROME
     Route: 042

REACTIONS (9)
  - Skin induration [Unknown]
  - Influenza like illness [Unknown]
  - Scleroderma [Unknown]
  - Vomiting [Unknown]
  - Joint stiffness [Unknown]
  - Skin burning sensation [Unknown]
  - Skin exfoliation [Unknown]
  - Nausea [Unknown]
  - Joint swelling [Unknown]
